FAERS Safety Report 18287603 (Version 1)
Quarter: 2020Q3

REPORT INFORMATION
  Report Type: Spontaneous
  Country: US (occurrence: US)
  Receive Date: 20200918
  Receipt Date: 20200918
  Transmission Date: 20201103
  Serious: Yes (Death)
  Sender: FDA-Public Use
  Company Number: None

PATIENT
  Age: 83 Year
  Sex: Male

DRUGS (1)
  1. CAPECITABINE 500MG TAB [Suspect]
     Active Substance: CAPECITABINE
     Indication: COLON CANCER
     Dosage: ROUTE: PO? 2WK ON ? 1 WK OFF
     Route: 048
     Dates: start: 20200901, end: 20200917

REACTIONS (1)
  - Death [None]

NARRATIVE: CASE EVENT DATE: 20200917
